FAERS Safety Report 5392222-0 (Version None)
Quarter: 2007Q3

REPORT INFORMATION
  Report Type: 
  Country: None (occurrence: None)
  Receive Date: 20070717
  Receipt Date: 20070717
  Transmission Date: 20080115
  Serious: Yes (Hospitalization)
  Sender: FDA-Public Use
  Company Number: None

PATIENT
  Age: 52 Year
  Sex: Female

DRUGS (7)
  1. CISPLATIN [Suspect]
     Indication: CERVIX CARCINOMA
     Dosage: 60 MG  EVERY WEEK  IV
     Route: 042
     Dates: start: 20060105, end: 20060119
  2. IRON PILLS [Concomitant]
  3. ATIVAN [Concomitant]
  4. TYLENOL (CAPLET) [Concomitant]
  5. LISINOPRIL [Concomitant]
  6. MAGNESIUM SULFATE [Concomitant]
  7. CIPROFLOXACIN [Concomitant]

REACTIONS (3)
  - DRUG TOXICITY [None]
  - NEPHROPATHY TOXIC [None]
  - RENAL FAILURE ACUTE [None]
